FAERS Safety Report 11467888 (Version 8)
Quarter: 2017Q1

REPORT INFORMATION
  Report Type: Report from Study
  Country: JP (occurrence: JP)
  Receive Date: 20150908
  Receipt Date: 20170120
  Transmission Date: 20170428
  Serious: Yes (Hospitalization, Disabling)
  Sender: FDA-Public Use
  Company Number: JP-B.I. PHARMACEUTICALS,INC./RIDGEFIELD-2015-BI-47301BI

PATIENT
  Age: 59 Year
  Sex: Male
  Weight: 72.8 kg

DRUGS (3)
  1. REZALTAS [Concomitant]
     Active Substance: AZELNIDIPINE\OLMESARTAN MEDOXOMIL
     Indication: HYPERTENSION
     Dosage: COMBINATION TABLETS HD
     Route: 048
     Dates: start: 201403, end: 20150817
  2. BI 10773 [Suspect]
     Active Substance: EMPAGLIFLOZIN
     Route: 065
     Dates: start: 20150718
  3. BI 10773 [Suspect]
     Active Substance: EMPAGLIFLOZIN
     Indication: TYPE 2 DIABETES MELLITUS
     Route: 048
     Dates: start: 20150718, end: 20150814

REACTIONS (1)
  - Lateral medullary syndrome [Recovered/Resolved with Sequelae]

NARRATIVE: CASE EVENT DATE: 20150814
